FAERS Safety Report 5151576-0 (Version None)
Quarter: 2006Q4

REPORT INFORMATION
  Report Type: 
  Country: None (occurrence: None)
  Receive Date: 20061109
  Receipt Date: 20061106
  Transmission Date: 20070319
  Serious: Yes (Other)
  Sender: FDA-Public Use
  Company Number: 2006-07-0542

PATIENT
  Age: 47 Year
  Sex: Male
  Weight: 78.9259 kg

DRUGS (7)
  1. PEG-INTRON [Suspect]
     Indication: HEPATITIS C
     Dosage: 120 MCG; QW; SC
     Route: 058
     Dates: start: 20060414, end: 20061006
  2. RIBAVIRIN [Suspect]
     Indication: HEPATITIS C
     Dosage: 1000 MG; QD; PO
     Route: 048
     Dates: start: 20060414, end: 20061006
  3. FOLIC ACID [Concomitant]
  4. VITAMIN B-12 [Concomitant]
  5. TOPROL-XL [Concomitant]
  6. DILAUDID [Concomitant]
  7. FLEXERIL [Concomitant]

REACTIONS (13)
  - ALCOHOL USE [None]
  - ANOREXIA [None]
  - BACK PAIN [None]
  - BLOOD POTASSIUM DECREASED [None]
  - CHEST PAIN [None]
  - DEHYDRATION [None]
  - DEPRESSION [None]
  - ECONOMIC PROBLEM [None]
  - FLANK PAIN [None]
  - LUNG INFILTRATION [None]
  - PAIN [None]
  - TREATMENT NONCOMPLIANCE [None]
  - URINE OUTPUT DECREASED [None]
